FAERS Safety Report 10333987 (Version 1)
Quarter: 2014Q3

REPORT INFORMATION
  Report Type: Spontaneous
  Country: IT (occurrence: IT)
  Receive Date: 20140723
  Receipt Date: 20140723
  Transmission Date: 20150326
  Serious: Yes (Hospitalization)
  Sender: FDA-Public Use
  Company Number: IT-RANBAXY-2014RR-83768

PATIENT
  Age: 32 Year
  Sex: Male

DRUGS (2)
  1. CLARITHROMYCIN. [Suspect]
     Active Substance: CLARITHROMYCIN
     Indication: EAR INFECTION
     Dosage: 2 DF, DAILY
     Route: 048
     Dates: start: 20140701, end: 20140708
  2. DELTACORTENE [Suspect]
     Active Substance: PREDNISONE
     Indication: EAR INFECTION
     Dosage: 1 DF, DAILY
     Route: 048
     Dates: start: 20140701, end: 20140708

REACTIONS (1)
  - Gastritis [Recovering/Resolving]

NARRATIVE: CASE EVENT DATE: 20140708
